FAERS Safety Report 5529770-6 (Version None)
Quarter: 2007Q4

REPORT INFORMATION
  Report Type: 
  Country: None (occurrence: None)
  Receive Date: 20071127
  Receipt Date: 20071108
  Transmission Date: 20080405
  Serious: Yes (Other)
  Sender: FDA-Public Use
  Company Number: 2007EN000276

PATIENT
  Age: 62 Year
  Sex: Female
  Weight: 61.2356 kg

DRUGS (3)
  1. OPANA ER [Suspect]
     Indication: SINUS TARSI SYNDROME
     Dosage: 5 MG; X1
     Dates: start: 20071009, end: 20071009
  2. VALIUM [Concomitant]
  3. HYZAAR [Concomitant]

REACTIONS (2)
  - BLOOD PRESSURE INCREASED [None]
  - MALAISE [None]
